FAERS Safety Report 9405504 (Version 1)
Quarter: 2013Q3

REPORT INFORMATION
  Report Type: Spontaneous
  Country: IT (occurrence: IT)
  Receive Date: 20130715
  Receipt Date: 20130715
  Transmission Date: 20140515
  Serious: Yes (Hospitalization)
  Sender: FDA-Public Use
  Company Number: AUR-APL-2013-05885

PATIENT
  Sex: Male

DRUGS (2)
  1. CARVEDILOL (CARVEDILOL) [Suspect]
     Indication: PRODUCT USED FOR UNKNOWN INDICATION
  2. VERAPAMIL HYDROCHLORIDE (VERAPAMIL HYDROCHLORIDE) [Concomitant]

REACTIONS (2)
  - Asthenia [None]
  - Atrial fibrillation [None]
